FAERS Safety Report 10173673 (Version 1)
Quarter: 2014Q2

REPORT INFORMATION
  Report Type: Spontaneous
  Country: PL (occurrence: PL)
  Receive Date: 20140515
  Receipt Date: 20140515
  Transmission Date: 20141212
  Serious: Yes (Other)
  Sender: FDA-Public Use
  Company Number: PL-TEVA-480081ISR

PATIENT
  Age: 70 Year
  Sex: Male

DRUGS (1)
  1. DIUVER [Suspect]
     Indication: CARDIAC FAILURE
     Dosage: 10 MILLIGRAM DAILY;
     Route: 048
     Dates: start: 20140414, end: 20140416

REACTIONS (4)
  - Dyspnoea [Recovered/Resolved]
  - Peripheral swelling [Recovered/Resolved]
  - Fatigue [Recovered/Resolved]
  - Cardiac failure [Unknown]
